FAERS Safety Report 24952630 (Version 2)
Quarter: 2025Q2

REPORT INFORMATION
  Report Type: Spontaneous
  Country: US (occurrence: US)
  Receive Date: 20250210
  Receipt Date: 20250510
  Transmission Date: 20250716
  Serious: No
  Sender: SANOFI AVENTIS
  Company Number: US-SA-2025SA039436

PATIENT
  Age: 20 Year
  Sex: Male

DRUGS (3)
  1. DUPIXENT [Suspect]
     Active Substance: DUPILUMAB
     Indication: Eczema
     Dosage: 300 MG, QOW
     Route: 058
     Dates: start: 20241029
  2. KETOCONAZOLE [Concomitant]
     Active Substance: KETOCONAZOLE
  3. CLOBETASOL [Concomitant]
     Active Substance: CLOBETASOL

REACTIONS (4)
  - Seborrhoeic dermatitis [Unknown]
  - Erythema [Unknown]
  - Dry skin [Unknown]
  - Tooth abscess [Unknown]

NARRATIVE: CASE EVENT DATE: 20250206
